FAERS Safety Report 9410553 (Version 1)
Quarter: 2013Q3

REPORT INFORMATION
  Report Type: Spontaneous
  Country: SK (occurrence: SK)
  Receive Date: 20130719
  Receipt Date: 20130719
  Transmission Date: 20140515
  Serious: Yes (Other)
  Sender: FDA-Public Use
  Company Number: SK-JNJFOC-20130709981

PATIENT
  Age: 36 Year
  Sex: 0
  Weight: 61 kg

DRUGS (11)
  1. REMICADE [Suspect]
     Indication: PSORIASIS
     Route: 042
     Dates: start: 20030311
  2. REMICADE [Suspect]
     Indication: PSORIASIS
     Route: 042
     Dates: start: 20130626, end: 20130626
  3. BRUFEN [Concomitant]
     Indication: PREMEDICATION
     Route: 048
     Dates: start: 20130626
  4. AMLODIPINE [Concomitant]
     Indication: HYPERTENSION
     Route: 065
  5. AMLODIPINE [Concomitant]
     Indication: HYPERTENSION
     Route: 065
  6. RILMENIDINE [Concomitant]
     Indication: HYPERTENSION
     Route: 065
  7. IVABRADINE [Concomitant]
     Indication: HYPERTENSION
     Route: 065
  8. SILYMARIN [Concomitant]
     Indication: LIVER DISORDER
     Route: 065
  9. PANTOPRAZOLE [Concomitant]
     Indication: GASTRITIS
     Route: 065
  10. HYDROCORTISONE [Concomitant]
     Indication: PREMEDICATION
     Route: 030
     Dates: start: 20130626
  11. BISULEPIN [Concomitant]
     Indication: PREMEDICATION
     Route: 048
     Dates: start: 20130626

REACTIONS (5)
  - Palpitations [Recovered/Resolved]
  - Hypertension [Recovered/Resolved]
  - Dyspnoea [Recovered/Resolved]
  - Infusion related reaction [Recovered/Resolved]
  - Rash [Recovered/Resolved]
